FAERS Safety Report 10003980 (Version 2)
Quarter: 2014Q1

REPORT INFORMATION
  Report Type: Spontaneous
  Country: PL (occurrence: PL)
  Receive Date: 20140312
  Receipt Date: 20140326
  Transmission Date: 20141002
  Serious: Yes (Hospitalization)
  Sender: FDA-Public Use
  Company Number: PL-ABBVIE-14P-129-1211845-00

PATIENT
  Age: 33 Year
  Sex: Female

DRUGS (10)
  1. KLACID [Suspect]
     Indication: PRODUCT USED FOR UNKNOWN INDICATION
  2. AMOXYCILLIN [Suspect]
     Indication: PRODUCT USED FOR UNKNOWN INDICATION
  3. CORTICOSTEROIDS [Concomitant]
     Indication: BRONCHITIS
     Route: 048
  4. CORTICOSTEROIDS [Concomitant]
     Indication: WHEEZING
     Route: 045
  5. CORTICOSTEROIDS [Concomitant]
     Indication: CHRONIC SINUSITIS
  6. ANTIHISTAMINES [Concomitant]
     Indication: CHRONIC SINUSITIS
     Route: 048
  7. ANTIHISTAMINES [Concomitant]
     Route: 045
  8. ANTIBIOTICS [Concomitant]
     Indication: BRONCHITIS
     Route: 048
  9. ANTIBIOTICS [Concomitant]
     Indication: WHEEZING
     Route: 045
  10. ANTIBIOTICS [Concomitant]
     Indication: CHRONIC SINUSITIS

REACTIONS (1)
  - Drug ineffective [Unknown]
